FAERS Safety Report 8256948-3 (Version None)
Quarter: 2012Q2

REPORT INFORMATION
  Report Type: 
  Country: None (occurrence: None)
  Receive Date: 20120403
  Receipt Date: 20120326
  Transmission Date: 20120825
  Serious: Yes (Other)
  Sender: FDA-Public Use
  Company Number: CA-JNJFOC-20120313012

PATIENT
  Sex: Female
  Weight: 53 kg

DRUGS (2)
  1. APO-AMOXI CLAV [Concomitant]
     Dosage: 500 MG-125 MG FOR 10 DAYS
     Route: 065
  2. REMICADE [Suspect]
     Indication: CROHN'S DISEASE
     Route: 042

REACTIONS (2)
  - ORAL SURGERY [None]
  - SINUSITIS [None]
